FAERS Safety Report 6046239-3 (Version None)
Quarter: 2009Q1

REPORT INFORMATION
  Report Type: 
  Country: None (occurrence: None)
  Receive Date: 20090122
  Receipt Date: 20090107
  Transmission Date: 20090719
  Serious: Yes (Other)
  Sender: FDA-Public Use
  Company Number: US-ELI_LILLY_AND_COMPANY-US200901000913

PATIENT
  Sex: Female

DRUGS (2)
  1. FORTEO [Suspect]
     Dosage: UNK, UNK
     Dates: start: 20040101
  2. FORTEO [Suspect]

REACTIONS (3)
  - DYSPHAGIA [None]
  - OESOPHAGEAL ACHALASIA [None]
  - VOMITING [None]
